FAERS Safety Report 6900006-4 (Version None)
Quarter: 2010Q3

REPORT INFORMATION
  Report Type: 
  Country: None (occurrence: None)
  Receive Date: 20100803
  Receipt Date: 20100723
  Transmission Date: 20110219
  Serious: Yes (Death, Hospitalization, Other)
  Sender: FDA-Public Use
  Company Number: PHHO2010GB07773

PATIENT
  Sex: Male
  Weight: 57.5 kg

DRUGS (9)
  1. AFINITOR [Suspect]
     Indication: ACUTE MYELOID LEUKAEMIA
     Dosage: 10 MG, UNK
     Route: 048
     Dates: start: 20100505, end: 20100520
  2. AFINITOR [Suspect]
     Indication: MYELODYSPLASTIC SYNDROME
  3. ARA-C [Suspect]
     Dosage: UNK
     Dates: start: 20100505, end: 20100509
  4. MITOXANTRONE [Suspect]
     Dosage: UNK
     Dates: start: 20100505, end: 20100509
  5. ACYCLOVIR [Concomitant]
     Indication: PROPHYLAXIS
  6. ITRACONAZOLE [Concomitant]
     Indication: PROPHYLAXIS
  7. ALLOPURINOL [Concomitant]
     Indication: PROPHYLAXIS
  8. DIURETICS [Concomitant]
  9. CALCIUM [Concomitant]

REACTIONS (9)
  - DEHYDRATION [None]
  - DIARRHOEA [None]
  - INFECTION [None]
  - MULTI-ORGAN FAILURE [None]
  - NEUTROPENIC SEPSIS [None]
  - PYREXIA [None]
  - RENAL FAILURE [None]
  - RESPIRATORY TRACT INFECTION [None]
  - URINE OUTPUT DECREASED [None]
